FAERS Safety Report 4896787-4 (Version None)
Quarter: 2006Q1

REPORT INFORMATION
  Report Type: 
  Country: None (occurrence: None)
  Receive Date: 20060131
  Receipt Date: 20051128
  Transmission Date: 20060701
  Serious: Yes (Other)
  Sender: FDA-Public Use
  Company Number: FR-SANOFI-SYNTHELABO-A02200503105

PATIENT
  Sex: Female
  Weight: 65 kg

DRUGS (7)
  1. STILNOX [Suspect]
     Route: 048
     Dates: start: 20051121, end: 20051121
  2. PLAVIX [Concomitant]
     Indication: CORONARY ARTERY DISEASE
     Dosage: UNK
     Route: 048
  3. TRIATEC [Concomitant]
     Indication: CORONARY ARTERY DISEASE
     Route: 048
  4. ZOCOR [Concomitant]
     Indication: DRUG USE FOR UNKNOWN INDICATION
     Route: 048
  5. CORVASAL [Concomitant]
     Indication: DRUG USE FOR UNKNOWN INDICATION
     Dosage: 4 MG
     Route: 048
  6. ATENOLOL [Concomitant]
     Indication: DRUG USE FOR UNKNOWN INDICATION
     Dosage: 50 MG
     Route: 048
  7. KARDEGIC [Concomitant]
     Indication: DRUG USE FOR UNKNOWN INDICATION
     Dosage: 75 MG
     Route: 048

REACTIONS (3)
  - ANTEROGRADE AMNESIA [None]
  - TRANSIENT ISCHAEMIC ATTACK [None]
  - VERTIGO [None]
